FAERS Safety Report 11459399 (Version 1)
Quarter: 2015Q3

REPORT INFORMATION
  Report Type: Spontaneous
  Country: US (occurrence: US)
  Receive Date: 20150904
  Receipt Date: 20150904
  Transmission Date: 20151125
  Serious: Yes (Other)
  Sender: FDA-Public Use
  Company Number: US-JNJFOC-20150808849

PATIENT
  Age: 7 Month
  Sex: Male

DRUGS (2)
  1. TOPIRAMATE. [Suspect]
     Active Substance: TOPIRAMATE
     Indication: INFANTILE SPASMS
     Route: 065
  2. TOPIRAMATE. [Suspect]
     Active Substance: TOPIRAMATE
     Indication: INFANTILE SPASMS
     Route: 065

REACTIONS (2)
  - Drug administered to patient of inappropriate age [Unknown]
  - Infantile spasms [Unknown]
